FAERS Safety Report 8581976-8 (Version None)
Quarter: 2012Q3

REPORT INFORMATION
  Report Type: 
  Country: None (occurrence: None)
  Receive Date: 20120809
  Receipt Date: 20120730
  Transmission Date: 20120928
  Serious: Yes (Hospitalization, Other)
  Sender: FDA-Public Use
  Company Number: JP-ALLERGAN-1210753US

PATIENT
  Age: 84 Year
  Sex: Female

DRUGS (2)
  1. TIMOPTOL XE [Concomitant]
     Indication: PRODUCT USED FOR UNKNOWN INDICATION
  2. LUMIGAN [Suspect]
     Indication: NORMAL TENSION GLAUCOMA
     Dosage: 1 GTT OU, QD
     Route: 047
     Dates: start: 20110715, end: 20120131

REACTIONS (4)
  - CORNEAL EROSION [None]
  - VITREOUS OPACITIES [None]
  - VISION BLURRED [None]
  - UVEITIS [None]
